FAERS Safety Report 7949202-8 (Version None)
Quarter: 2011Q4

REPORT INFORMATION
  Report Type: 
  Country: None (occurrence: None)
  Receive Date: 20111130
  Receipt Date: 20111125
  Transmission Date: 20120403
  Serious: Yes (Death, Life-Threatening, Hospitalization)
  Sender: FDA-Public Use
  Company Number: GXKR2011DE003435

PATIENT

DRUGS (8)
  1. TORSEMIDE [Concomitant]
     Dosage: 5 MG, UNK
     Route: 048
     Dates: start: 20110415, end: 20110429
  2. TAMSULOSIN HCL [Concomitant]
     Dosage: 0.4 MG, UNK
     Route: 048
     Dates: start: 20110122, end: 20110503
  3. CITALOPRAM [Concomitant]
     Dosage: 20 MG, UNK
     Route: 048
     Dates: start: 20110407, end: 20110410
  4. ACETYLSALICYLIC ACID SRT [Concomitant]
     Dosage: 100 MG, UNK
     Route: 048
     Dates: start: 20110122, end: 20110503
  5. ZOLPIDEM [Suspect]
     Dosage: 5 MG, UNK
     Route: 048
     Dates: start: 20110122, end: 20110414
  6. TORSEMIDE [Concomitant]
     Route: 048
     Dates: start: 20110430, end: 20110503
  7. CITALOPRAM [Concomitant]
     Route: 048
     Dates: start: 20110411, end: 20110503
  8. ZOLPIDEM [Suspect]
     Route: 048
     Dates: start: 20110415, end: 20110429

REACTIONS (6)
  - FATIGUE [None]
  - INCREASED UPPER AIRWAY SECRETION [None]
  - SLEEP DISORDER [None]
  - DELIRIUM [None]
  - COUGH [None]
  - PNEUMONIA [None]
